FAERS Safety Report 9221275 (Version 2)
Quarter: 2013Q2

REPORT INFORMATION
  Report Type: Spontaneous
  Country: US (occurrence: US)
  Receive Date: 20130410
  Receipt Date: 20130419
  Transmission Date: 20140414
  Serious: Yes (Death, Life-Threatening, Hospitalization, Disabling, Other)
  Sender: FDA-Public Use
  Company Number: US-009507513-1304USA003724

PATIENT
  Age: 65 Year
  Sex: Male

DRUGS (3)
  1. INTEGRILIN [Suspect]
     Indication: PERCUTANEOUS CORONARY INTERVENTION
     Dosage: DOSAGE GIVEN BASED ON PATIENT^S WEIGHT
     Route: 040
     Dates: start: 20130321
  2. PLAVIX [Concomitant]
     Dosage: 300 MG
     Route: 048
     Dates: start: 20130320
  3. ANGIOMAX [Concomitant]
     Dosage: DOSAGE GIVEN BASED ON PATIENT^S WEIGHT
     Dates: start: 20130321

REACTIONS (1)
  - Pelvic haemorrhage [Fatal]
